FAERS Safety Report 16945325 (Version 4)
Quarter: 2019Q4

REPORT INFORMATION
  Report Type: Report from Study
  Country: CO (occurrence: CO)
  Receive Date: 20191022
  Receipt Date: 20191107
  Transmission Date: 20200122
  Serious: Yes (Hospitalization, Other)
  Sender: FDA-Public Use
  Company Number: CO-GLAXOSMITHKLINE-CO2019AMR169904

PATIENT
  Age: 26 Year
  Sex: Female
  Weight: 85 kg

DRUGS (6)
  1. BUDESONIDE. [Concomitant]
     Active Substance: BUDESONIDE
     Indication: PRODUCT USED FOR UNKNOWN INDICATION
     Dosage: 1 DF, BID
  2. TIOTROPIUM BROMIDE [Concomitant]
     Active Substance: TIOTROPIUM BROMIDE
     Indication: PRODUCT USED FOR UNKNOWN INDICATION
     Dosage: 2 PUFF(S), QD
  3. LEVOCETIRIZINE [Concomitant]
     Active Substance: LEVOCETIRIZINE
     Indication: PRODUCT USED FOR UNKNOWN INDICATION
     Dosage: 5 MG, QD
  4. MONTELUKAST [Concomitant]
     Active Substance: MONTELUKAST SODIUM
     Indication: PRODUCT USED FOR UNKNOWN INDICATION
     Dosage: 10 MG, QD
  5. MEPOLIZUMAB [Suspect]
     Active Substance: MEPOLIZUMAB
     Indication: ASTHMA
     Dosage: 100 MG, Z (MONTHLY)
     Route: 058
     Dates: start: 20190903
  6. LEVOTHYROXINE. [Concomitant]
     Active Substance: LEVOTHYROXINE
     Indication: PRODUCT USED FOR UNKNOWN INDICATION
     Dosage: 5 MG, QD

REACTIONS (13)
  - Bronchitis [Recovering/Resolving]
  - Tremor [Recovering/Resolving]
  - Asthmatic crisis [Unknown]
  - Headache [Recovering/Resolving]
  - Chest pain [Recovering/Resolving]
  - Productive cough [Recovering/Resolving]
  - Dyspnoea [Recovering/Resolving]
  - Skin discolouration [Recovering/Resolving]
  - Hypotension [Recovering/Resolving]
  - Cough [Recovering/Resolving]
  - Vomiting [Recovering/Resolving]
  - Muscle fatigue [Recovering/Resolving]
  - Dizziness [Recovering/Resolving]

NARRATIVE: CASE EVENT DATE: 20191004
